FAERS Safety Report 7321249-4 (Version None)
Quarter: 2011Q1

REPORT INFORMATION
  Report Type: 
  Country: None (occurrence: None)
  Receive Date: 20110228
  Receipt Date: 20110215
  Transmission Date: 20110831
  Serious: Yes (Hospitalization)
  Sender: FDA-Public Use
  Company Number: TR-WATSON-2011-02407

PATIENT
  Age: 9 Year
  Sex: Male

DRUGS (1)
  1. TACROLIMUS [Suspect]
     Indication: IMMUNOSUPPRESSION
     Dosage: UNK

REACTIONS (12)
  - MENTAL STATUS CHANGES [None]
  - HALLUCINATION, VISUAL [None]
  - AGGRESSION [None]
  - DIPLOPIA [None]
  - SPEECH DISORDER [None]
  - CYTOTOXIC OEDEMA [None]
  - REFLEXES ABNORMAL [None]
  - POSTERIOR REVERSIBLE ENCEPHALOPATHY SYNDROME [None]
  - ABNORMAL BEHAVIOUR [None]
  - GRAND MAL CONVULSION [None]
  - VASOGENIC CEREBRAL OEDEMA [None]
  - EXTENSOR PLANTAR RESPONSE [None]
